FAERS Safety Report 5487872-7 (Version None)
Quarter: 2007Q4

REPORT INFORMATION
  Report Type: 
  Country: None (occurrence: None)
  Receive Date: 20071017
  Receipt Date: 20071004
  Transmission Date: 20080405
  Serious: Yes (Hospitalization, Other)
  Sender: FDA-Public Use
  Company Number: US-PFIZER INC-2007083745

PATIENT
  Sex: Female
  Weight: 77.272 kg

DRUGS (11)
  1. XANAX [Interacting]
     Indication: PSYCHOMOTOR HYPERACTIVITY
  2. XANAX [Interacting]
     Indication: DEPRESSION
  3. GABAPENTIN [Suspect]
     Indication: PELVIC PAIN
  4. GABAPENTIN [Suspect]
     Indication: NERVE INJURY
  5. MOTRIN [Suspect]
     Indication: PELVIC PAIN
  6. HISMANAL [Interacting]
  7. LOPRESSOR [Concomitant]
  8. MEVACOR [Concomitant]
  9. CLARITIN [Concomitant]
  10. DYAZIDE [Concomitant]
  11. ASPIRIN [Concomitant]

REACTIONS (18)
  - CHEST PAIN [None]
  - CLUMSINESS [None]
  - DEPRESSED MOOD [None]
  - DRUG INEFFECTIVE [None]
  - DRUG INTERACTION [None]
  - FATIGUE [None]
  - GAIT DISTURBANCE [None]
  - HYSTERECTOMY [None]
  - INCISION SITE INFECTION [None]
  - LIMB INJURY [None]
  - LOSS OF EMPLOYMENT [None]
  - NERVE INJURY [None]
  - PANIC ATTACK [None]
  - PELVIC PAIN [None]
  - SOMNOLENCE [None]
  - SUICIDAL IDEATION [None]
  - THINKING ABNORMAL [None]
  - VISION BLURRED [None]
